FAERS Safety Report 20638162 (Version 2)
Quarter: 2022Q1

REPORT INFORMATION
  Report Type: Spontaneous
  Country: GB (occurrence: GB)
  Receive Date: 20220325
  Receipt Date: 20220331
  Transmission Date: 20220423
  Serious: Yes (Other)
  Sender: FDA-Public Use
  Company Number: GB-MHRA-MED-202203091028126510-CESKQ

PATIENT
  Age: 50 Year
  Sex: Male

DRUGS (2)
  1. VORICONAZOLE [Suspect]
     Active Substance: VORICONAZOLE
     Dosage: 400 MG, 2X/DAY
  2. VORICONAZOLE [Suspect]
     Active Substance: VORICONAZOLE
     Dosage: 200 MG, 2X/DAY

REACTIONS (5)
  - Medication error [Unknown]
  - Visual impairment [Unknown]
  - Hallucination [Unknown]
  - Dizziness [Unknown]
  - Migraine [Unknown]
